FAERS Safety Report 20896475 (Version 1)
Quarter: 2022Q2

REPORT INFORMATION
  Report Type: Spontaneous
  Country: GB (occurrence: GB)
  Receive Date: 20220531
  Receipt Date: 20220531
  Transmission Date: 20220721
  Serious: Yes (Other)
  Sender: FDA-Public Use
  Company Number: GB-MHRA-MED-202205242254065800-JO26M

PATIENT
  Age: 50 Year
  Sex: Male

DRUGS (1)
  1. GABAPENTIN [Suspect]
     Active Substance: GABAPENTIN
     Indication: Arthralgia
     Dosage: 300 MILLIGRAM, TID, (300MG 3 TIMES A DAY)

REACTIONS (1)
  - Loss of control of legs [Recovering/Resolving]

NARRATIVE: CASE EVENT DATE: 20220523
